FAERS Safety Report 8726221 (Version 8)
Quarter: 2018Q4

REPORT INFORMATION
  Report Type: Spontaneous
  Country: FR (occurrence: FR)
  Receive Date: 20120816
  Receipt Date: 20181204
  Transmission Date: 20190205
  Serious: Yes (Hospitalization, Other)
  Sender: FDA-Public Use
  Company Number: FR-PFIZER INC-2012195231

PATIENT
  Age: 17 Year
  Sex: Female
  Weight: 59 kg

DRUGS (13)
  1. PROFENID [Suspect]
     Active Substance: KETOPROFEN
     Dosage: 50 MG, SINGLE IN THE MORNING
     Route: 048
     Dates: start: 20120724, end: 20120724
  2. PRIMPERAN [Concomitant]
     Active Substance: METOCLOPRAMIDE HYDROCHLORIDE
     Indication: DRUG THERAPY
     Dosage: 10 MG, SINGLE
     Dates: start: 20120723, end: 20120723
  3. ADVIL [Suspect]
     Active Substance: IBUPROFEN
     Indication: SELF-MEDICATION
     Dosage: 600 MG TOTAL DOSE
     Route: 048
     Dates: start: 20120724, end: 20120725
  4. PROFENID [Suspect]
     Active Substance: KETOPROFEN
     Indication: DRUG THERAPY
     Dosage: 100 MG IN THE OPERATING ROOM; 100 MG DURING THE NIGHT
     Route: 048
     Dates: start: 20120723, end: 20120723
  5. DIPRIVAN [Concomitant]
     Active Substance: PROPOFOL
     Indication: ANAESTHESIA
     Dosage: 200 MG, SINGLE
     Dates: start: 20120723, end: 20120723
  6. MEFENAMIC ACID. [Suspect]
     Active Substance: MEFENAMIC ACID
     Indication: SELF-MEDICATION
     Dosage: UNK  (ADDITIONAL INFORMATION ON DRUG ADVIL)
     Route: 048
     Dates: start: 20120724, end: 20120725
  7. MOPRAL [Suspect]
     Active Substance: OMEPRAZOLE
     Indication: DRUG THERAPY
     Dosage: 20 MG, SINGLE
     Route: 048
     Dates: start: 20120723, end: 20120723
  8. ATARAX [Concomitant]
     Active Substance: HYDROXYZINE HYDROCHLORIDE
     Indication: PREMEDICATION
     Dosage: 100 MG, SINGLE
     Dates: start: 20120723, end: 20120723
  9. SUFENTA [Concomitant]
     Active Substance: SUFENTANIL CITRATE
     Indication: ANAESTHESIA
     Dosage: 20 GAMMA
     Dates: start: 20120723, end: 20120723
  10. ADVIL [Suspect]
     Active Substance: IBUPROFEN
     Dosage: UNK
  11. MIDAZOLAM [Concomitant]
     Active Substance: MIDAZOLAM HYDROCHLORIDE
     Indication: ANAESTHESIA
     Dosage: 1.5 MG, SINGLE
     Dates: start: 20120723, end: 20120723
  12. PERFALGAN [Concomitant]
     Active Substance: ACETAMINOPHEN
     Indication: DRUG THERAPY
     Dosage: 1 G, BID
     Route: 042
     Dates: start: 20120723, end: 20120724
  13. CEFAZOLIN [Concomitant]
     Active Substance: CEFAZOLIN
     Indication: ANAESTHESIA
     Dosage: 2 G, UNK
     Dates: start: 20120723, end: 20120723

REACTIONS (2)
  - Acute kidney injury [Recovered/Resolved]
  - Tubulointerstitial nephritis [Recovered/Resolved]

NARRATIVE: CASE EVENT DATE: 20120725
